FAERS Safety Report 23047395 (Version 4)
Quarter: 2024Q1

REPORT INFORMATION
  Report Type: Report from Study
  Country: US (occurrence: US)
  Receive Date: 20231010
  Receipt Date: 20240202
  Transmission Date: 20240409
  Serious: Yes (Hospitalization, Other)
  Sender: FDA-Public Use
  Company Number: US-ABBVIE-5397121

PATIENT
  Sex: Female
  Weight: 100 kg

DRUGS (13)
  1. HUMIRA [Suspect]
     Active Substance: ADALIMUMAB
     Indication: Rheumatoid arthritis
     Dosage: CITRATE FREE FORM STRENGTH: 40 MILLIGRAM
     Route: 058
     Dates: start: 20230117, end: 20230810
  2. HUMIRA [Suspect]
     Active Substance: ADALIMUMAB
     Dosage: CITRATE FREE FORM STRENGTH: 40 MILLIGRAM?LAST ADMIN DATE: DEC 2022
     Route: 058
     Dates: start: 20211215
  3. HUMIRA [Suspect]
     Active Substance: ADALIMUMAB
     Dosage: CITRATE FREE, FORM STRENGTH: 40 MILLIGRAM
     Route: 058
     Dates: start: 20211015
  4. PLAQUENIL [Concomitant]
     Active Substance: HYDROXYCHLOROQUINE SULFATE
     Indication: Product used for unknown indication
  5. UNSPECIFIED INGREDIENT [Concomitant]
     Active Substance: UNSPECIFIED INGREDIENT
     Indication: Product used for unknown indication
     Dosage: UNSPECIFIED
  6. COVID-19 vaccine [Concomitant]
     Indication: COVID-19 immunisation
     Dosage: 1ST VACCINE UNSPECIFIED
  7. COVID-19 vaccine [Concomitant]
     Indication: COVID-19 immunisation
     Dosage: 2ND VACCINE UNSPECIFIED
  8. COVID-19 vaccine [Concomitant]
     Indication: COVID-19 immunisation
     Dosage: 3RD VACCINE UNSPECIFIED
  9. COVID-19 vaccine [Concomitant]
     Indication: COVID-19 immunisation
     Dosage: 4TH VACCINE UNSPECIFIED
  10. COVID-19 vaccine [Concomitant]
     Indication: COVID-19 immunisation
     Dosage: 5TH VACCINE UNSPECIFIED
  11. COVID-19 vaccine [Concomitant]
     Indication: COVID-19 immunisation
     Dosage: 6TH VACCINE UNSPECIFIED
  12. INFLUENZA VIRUS VACCINE [Concomitant]
     Active Substance: INFLUENZA VIRUS VACCINE
     Indication: Product used for unknown indication
  13. UNSPECIFIED INGREDIENT [Concomitant]
     Active Substance: UNSPECIFIED INGREDIENT
     Indication: Product used for unknown indication

REACTIONS (14)
  - COVID-19 [Recovered/Resolved]
  - Pneumonia [Recovered/Resolved]
  - Postural orthostatic tachycardia syndrome [Not Recovered/Not Resolved]
  - Knee arthroplasty [Recovering/Resolving]
  - Pain [Recovering/Resolving]
  - Illness [Recovered/Resolved]
  - Osteoarthritis [Recovering/Resolving]
  - Vaccination failure [Not Recovered/Not Resolved]
  - Heart rate increased [Not Recovered/Not Resolved]
  - Lactose intolerance [Not Recovered/Not Resolved]
  - Oxygen saturation decreased [Recovered/Resolved]
  - Ataxia [Recovered/Resolved]
  - Osteoporosis [Unknown]
  - Procedural pain [Recovering/Resolving]

NARRATIVE: CASE EVENT DATE: 20220101
